FAERS Safety Report 8492156-9 (Version None)
Quarter: 2012Q3

REPORT INFORMATION
  Report Type: 
  Country: None (occurrence: None)
  Receive Date: 20120706
  Receipt Date: 20120702
  Transmission Date: 20120928
  Serious: Yes (Hospitalization)
  Sender: FDA-Public Use
  Company Number: US-ROCHE-1083752

PATIENT
  Sex: Male

DRUGS (9)
  1. GABAPENTIN [Concomitant]
     Dates: start: 20111101
  2. TRAMADOL HCL [Concomitant]
     Dates: start: 20100101
  3. COPEGUS [Suspect]
     Indication: HEPATITIS C
     Route: 048
     Dates: start: 20120425
  4. BACLOFEN [Concomitant]
     Dates: start: 20100101
  5. PROMETHAZINE [Concomitant]
     Dates: start: 20120509
  6. HYDROCODONE BITARTRATE [Concomitant]
     Dates: start: 20120309
  7. DACLATASVIR [Suspect]
     Indication: HEPATITIS C
     Route: 048
     Dates: start: 20120425
  8. PEGASYS [Suspect]
     Indication: HEPATITIS C
     Route: 058
     Dates: start: 20120425
  9. ACETAMINOPHEN [Concomitant]
     Dates: start: 20120501

REACTIONS (3)
  - CHEST PAIN [None]
  - SYNCOPE [None]
  - HEADACHE [None]
